FAERS Safety Report 7480642-X (Version None)
Quarter: 2011Q2

REPORT INFORMATION
  Report Type: 
  Country: None (occurrence: None)
  Receive Date: 20110516
  Receipt Date: 20110503
  Transmission Date: 20111010
  Serious: Yes (Death, Hospitalization)
  Sender: FDA-Public Use
  Company Number: DE-JNJFOC-20110107368

PATIENT
  Sex: Male
  Weight: 76 kg

DRUGS (12)
  1. SPIRONOLACTONE [Concomitant]
     Indication: MYOCARDIAL ISCHAEMIA
  2. PRAMIPEXOLE DIHYDROCHLORIDE [Concomitant]
     Indication: PARKINSON'S DISEASE
  3. TORSEMIDE [Concomitant]
     Indication: CORONARY ARTERY DISEASE
  4. RAMIPRIL [Concomitant]
     Indication: ESSENTIAL HYPERTENSION
  5. CRATAEGUTT NOVO [Concomitant]
     Indication: CORONARY ARTERY DISEASE
  6. LEVODOPA [Concomitant]
     Indication: PARKINSON'S DISEASE
  7. TAPENTADOL [Suspect]
     Indication: BACK PAIN
     Route: 048
     Dates: start: 20101125, end: 20110108
  8. METOPROLOL SUCCINATE [Concomitant]
     Indication: ESSENTIAL HYPERTENSION
  9. THIAMAZOL [Concomitant]
     Indication: HYPERTHYROIDISM
  10. TAPENTADOL [Suspect]
     Indication: PAIN
     Route: 048
     Dates: start: 20101125, end: 20110108
  11. TRAMADOL HYDROCHLORIDE [Concomitant]
     Indication: PAIN
  12. FENTANYL [Concomitant]

REACTIONS (6)
  - MEGACOLON [None]
  - VOMITING [None]
  - CARDIAC ARREST [None]
  - NAUSEA [None]
  - MECHANICAL ILEUS [None]
  - GASTROINTESTINAL MOTILITY DISORDER [None]
